FAERS Safety Report 9791801 (Version 3)
Quarter: 2014Q1

REPORT INFORMATION
  Report Type: Spontaneous
  Country: RU (occurrence: RU)
  Receive Date: 20140102
  Receipt Date: 20140220
  Transmission Date: 20141002
  Serious: Yes (Death, Hospitalization, Other)
  Sender: FDA-Public Use
  Company Number: RU-JNJFOC-20131217067

PATIENT
  Age: 60 Year
  Sex: Male

DRUGS (2)
  1. XARELTO [Suspect]
     Indication: EMBOLISM VENOUS
     Route: 048
     Dates: start: 20131129, end: 20131207
  2. XARELTO [Suspect]
     Indication: DEEP VEIN THROMBOSIS
     Route: 048
     Dates: start: 20131129, end: 20131207

REACTIONS (6)
  - Cerebral haemorrhage [Unknown]
  - Convulsion [Unknown]
  - Cerebral haematoma [Unknown]
  - Coma [Unknown]
  - Death [Fatal]
  - Pneumonia aspiration [Unknown]
